FAERS Safety Report 6805753-0 (Version None)
Quarter: 2010Q2

REPORT INFORMATION
  Report Type: 
  Country: None (occurrence: None)
  Receive Date: 20100628
  Receipt Date: 20100624
  Transmission Date: 20101027
  Serious: Yes (Hospitalization)
  Sender: FDA-Public Use
  Company Number: US-BRISTOL-MYERS SQUIBB COMPANY-15150022

PATIENT
  Age: 61 Year
  Sex: Male

DRUGS (13)
  1. ABATACEPT [Suspect]
     Indication: RHEUMATOID ARTHRITIS
     Route: 058
     Dates: start: 20081010
  2. METHOTREXATE [Suspect]
     Indication: RHEUMATOID ARTHRITIS
     Dates: start: 20091022
  3. WELLBUTRIN [Concomitant]
     Dates: start: 20100110
  4. FLOMAX [Concomitant]
     Dates: start: 20100104
  5. FLUTICASONE [Concomitant]
     Dates: start: 20050401
  6. EXCEDRIN (MIGRAINE) [Concomitant]
     Dates: start: 20080401
  7. IBUPROFEN [Concomitant]
     Dates: start: 20070301
  8. TRAMADOL HCL [Concomitant]
     Dates: start: 20080101
  9. ASPIRIN [Concomitant]
     Dates: start: 20010101
  10. SINGULAIR [Concomitant]
     Dates: start: 20080701
  11. FOLIC ACID [Concomitant]
     Dates: start: 20080101
  12. RANITIDINE [Concomitant]
     Dates: start: 20030101
  13. HYDROCODONE BITARTRATE AND ACETAMINOPHEN [Concomitant]
     Dates: start: 20090617

REACTIONS (1)
  - APPENDICITIS [None]
